FAERS Safety Report 6141806-0 (Version None)
Quarter: 2009Q2

REPORT INFORMATION
  Report Type: 
  Country: None (occurrence: None)
  Receive Date: 20090402
  Receipt Date: 20090129
  Transmission Date: 20091009
  Serious: No
  Sender: FDA-Public Use
  Company Number: US-ABBOTT-09P-163-0500840-00

PATIENT
  Sex: Female
  Weight: 75.364 kg

DRUGS (4)
  1. LUPRON DEPOT [Suspect]
     Indication: HEADACHE
     Route: 030
     Dates: start: 20090113
  2. DAPSONE [Concomitant]
     Indication: DERMATITIS HERPETIFORMIS
     Route: 048
  3. ATENOLOL [Concomitant]
     Indication: HYPERTENSION
  4. PRILOSEC [Concomitant]
     Indication: GASTROOESOPHAGEAL REFLUX DISEASE

REACTIONS (1)
  - DERMATITIS HERPETIFORMIS [None]
